FAERS Safety Report 19490349 (Version 1)
Quarter: 2021Q3

REPORT INFORMATION
  Report Type: Spontaneous
  Country: FR (occurrence: FR)
  Receive Date: 20210705
  Receipt Date: 20210705
  Transmission Date: 20211014
  Serious: Yes (Hospitalization, Other)
  Sender: FDA-Public Use
  Company Number: FR-AUROBINDO-AUR-APL-2021-028524

PATIENT
  Sex: Male

DRUGS (7)
  1. CARMUSTINE. [Suspect]
     Active Substance: CARMUSTINE
     Indication: PRODUCT USED FOR UNKNOWN INDICATION
     Dosage: 600 MILLIGRAM
     Route: 042
     Dates: start: 20070216, end: 20070216
  2. MABTHERA [Suspect]
     Active Substance: RITUXIMAB
     Indication: TRANSPLANT
     Dosage: 500 MILLIGRAM
     Route: 042
     Dates: start: 20070208, end: 20070221
  3. ZEVALIN [Suspect]
     Active Substance: IBRITUMOMAB TIUXETAN
     Indication: TRANSPLANT
     Dosage: 890 MEGABECQUEREL
     Route: 042
  4. MELPHALAN. [Suspect]
     Active Substance: MELPHALAN
     Indication: TRANSPLANT
     Dosage: 280 MILLIGRAM
     Route: 042
     Dates: start: 20070221, end: 20070221
  5. KEPIVANCE [Suspect]
     Active Substance: PALIFERMIN
     Indication: PROPHYLAXIS
     Dosage: 8 MILLIGRAM
     Route: 042
     Dates: start: 20070212, end: 20070225
  6. CYTARABINE. [Suspect]
     Active Substance: CYTARABINE
     Indication: TRANSPLANT
     Dosage: 800 MILLIGRAM
     Route: 042
     Dates: start: 20070217, end: 20070220
  7. ETOPOSIDE. [Suspect]
     Active Substance: ETOPOSIDE
     Indication: TRANSPLANT
     Dosage: 400 MILLIGRAM
     Route: 042
     Dates: start: 20070217, end: 20070220

REACTIONS (1)
  - Cytopenia [Not Recovered/Not Resolved]
